FAERS Safety Report 6671223-6 (Version None)
Quarter: 2010Q2

REPORT INFORMATION
  Report Type: 
  Country: None (occurrence: None)
  Receive Date: 20100406
  Receipt Date: 20100406
  Transmission Date: 20101027
  Serious: Yes (Disabling)
  Sender: FDA-Public Use
  Company Number: None

PATIENT
  Age: 70 Year
  Sex: Female
  Weight: 62.5964 kg

DRUGS (1)
  1. ACTONEL [Suspect]
     Dosage: 35MG ONCE A WEEK ORAL
     Route: 048
     Dates: start: 20040504, end: 20050723

REACTIONS (4)
  - ABASIA [None]
  - GROIN PAIN [None]
  - MUSCULAR WEAKNESS [None]
  - RASH [None]
